FAERS Safety Report 6765587-2 (Version None)
Quarter: 2010Q2

REPORT INFORMATION
  Report Type: 
  Country: None (occurrence: None)
  Receive Date: 20100610
  Receipt Date: 20100610
  Transmission Date: 20101027
  Serious: Yes (Hospitalization)
  Sender: FDA-Public Use
  Company Number: None

PATIENT
  Age: 68 Year
  Sex: Female
  Weight: 51 kg

DRUGS (8)
  1. AZACITIDINE [Suspect]
     Dosage: 100MG, DAILY, IV
     Route: 042
     Dates: start: 20100329
  2. AZACITIDINE [Suspect]
     Dosage: 100MG, DAILY, IV
     Route: 042
     Dates: start: 20100330
  3. AZACITIDINE [Suspect]
     Dosage: 100MG, DAILY, IV
     Route: 042
     Dates: start: 20100401
  4. AZACITIDINE [Suspect]
     Dosage: 100MG, DAILY, IV
     Route: 042
     Dates: start: 20100402
  5. ONDANSETRON [Concomitant]
  6. MAGNESIUM [Concomitant]
  7. MIRTAZAPINE [Concomitant]
  8. CALCIUM CARBONATE/VITAMIN D [Concomitant]

REACTIONS (5)
  - ARTERIOSPASM CORONARY [None]
  - CHEST PAIN [None]
  - ELECTROCARDIOGRAM ST SEGMENT ELEVATION [None]
  - TACHYCARDIA [None]
  - THROMBOCYTOPENIA [None]
